FAERS Safety Report 19295136 (Version 5)
Quarter: 2022Q1

REPORT INFORMATION
  Report Type: Report from Study
  Country: FR (occurrence: None)
  Receive Date: 20210524
  Receipt Date: 20220106
  Transmission Date: 20220423
  Serious: Yes (Hospitalization)
  Sender: FDA-Public Use
  Company Number: FR-ROCHE-2831609

PATIENT
  Age: 71 Year
  Sex: Female
  Weight: 53 kg

DRUGS (6)
  1. ATEZOLIZUMAB [Suspect]
     Active Substance: ATEZOLIZUMAB
     Indication: Ovarian cancer
     Dosage: DATE OF MOST RECENT DOSE PRIOR TO SAE: 12/MAY/2021?DATE OF MOST RECENT DOSE PRIOR TO SAE: 04/JUN/202
     Route: 041
     Dates: start: 20191211
  2. BEVACIZUMAB [Suspect]
     Active Substance: BEVACIZUMAB
     Indication: Ovarian cancer
     Dosage: DATE OF MOST RECENT DOSE PRIOR TO SAE: 12/MAY/2021?DATE OF MOST RECENT DOSE PRIOR TO SAE(750 MG): 16
     Route: 042
     Dates: start: 20191211
  3. ASPIRIN [Suspect]
     Active Substance: ASPIRIN
     Indication: Ovarian cancer
     Dosage: DATE OF MOST RECENT DOSE PRIOR TO SAE: 29/OCT/2020
     Route: 048
     Dates: start: 20191211
  4. DOLIPRANE [Concomitant]
     Active Substance: ACETAMINOPHEN
     Indication: Analgesic therapy
     Route: 048
     Dates: start: 20210512
  5. INNOHEP [Concomitant]
     Active Substance: TINZAPARIN SODIUM
     Dosage: 10000 UI
     Route: 058
     Dates: start: 20210512
  6. LEVOTHYROXINE [Concomitant]
     Active Substance: LEVOTHYROXINE
     Indication: Hypothyroidism
     Dates: start: 20210513

REACTIONS (3)
  - Urinary retention [Recovered/Resolved with Sequelae]
  - Cardiac failure [Recovered/Resolved]
  - Dyspnoea [Recovered/Resolved]

NARRATIVE: CASE EVENT DATE: 20210512
